FAERS Safety Report 5986856-X (Version None)
Quarter: 2008Q4

REPORT INFORMATION
  Report Type: 
  Country: None (occurrence: None)
  Receive Date: 20081209
  Receipt Date: 20081107
  Transmission Date: 20090506
  Serious: No
  Sender: FDA-Public Use
  Company Number: US-BAYER-200814337BCC

PATIENT
  Age: 84 Year
  Sex: Female
  Weight: 44 kg

DRUGS (3)
  1. ALEVE [Suspect]
     Indication: ARTHRITIS
     Dosage: TOTAL DAILY DOSE: 220 MG  UNIT DOSE: 220 MG
     Route: 048
     Dates: start: 20081107
  2. SYNTHROID [Concomitant]
  3. MULTI-VITAMIN [Concomitant]

REACTIONS (5)
  - DYSGEUSIA [None]
  - DYSPHONIA [None]
  - FOREIGN BODY TRAUMA [None]
  - OROPHARYNGEAL DISCOMFORT [None]
  - THROAT IRRITATION [None]
